FAERS Safety Report 9771324 (Version 1)
Quarter: 2013Q4

REPORT INFORMATION
  Report Type: Spontaneous
  Country: TR (occurrence: TR)
  Receive Date: 20131218
  Receipt Date: 20131218
  Transmission Date: 20140711
  Serious: Yes (Hospitalization)
  Sender: FDA-Public Use
  Company Number: PHHY2013TR145657

PATIENT
  Age: 49 Year
  Sex: Male

DRUGS (1)
  1. CARBAMAZEPINE [Suspect]
     Indication: GRAND MAL CONVULSION
     Dosage: 800 MG, PER DAY

REACTIONS (11)
  - Dissociative fugue [Recovering/Resolving]
  - Status epilepticus [Recovering/Resolving]
  - Agitation [Recovering/Resolving]
  - Aggression [Recovering/Resolving]
  - Abnormal behaviour [Recovering/Resolving]
  - Screaming [Recovering/Resolving]
  - Amnesia [Recovering/Resolving]
  - Restlessness [Recovering/Resolving]
  - Hallucination [Unknown]
  - Confusional state [Recovering/Resolving]
  - Stab wound [Unknown]
